FAERS Safety Report 4449879-8 (Version None)
Quarter: 2004Q3

REPORT INFORMATION
  Report Type: 
  Country: None (occurrence: None)
  Receive Date: 20040915
  Receipt Date: 20040819
  Transmission Date: 20050211
  Serious: Yes (Hospitalization, Disabling, Other)
  Sender: FDA-Public Use
  Company Number: US-MERCK-0408USA01681

PATIENT
  Age: 63 Year
  Sex: Male
  Weight: 78 kg

DRUGS (9)
  1. VASOTEC [Concomitant]
     Indication: HYPERTENSION
     Route: 048
     Dates: start: 20010101
  2. ZETIA [Suspect]
     Indication: BLOOD CHOLESTEROL INCREASED
     Route: 048
     Dates: start: 20030101
  3. TRICOR [Suspect]
     Indication: BLOOD CHOLESTEROL INCREASED
     Route: 065
  4. STARLIX [Concomitant]
     Indication: DIABETES MELLITUS NON-INSULIN-DEPENDENT
     Route: 048
     Dates: start: 20000101
  5. NIFEDIPINE [Concomitant]
     Indication: HYPERTENSION
     Route: 048
     Dates: start: 19990101
  6. NIFEDIPINE [Concomitant]
     Route: 048
     Dates: start: 19990901
  7. ACTOS [Concomitant]
     Indication: DIABETES MELLITUS NON-INSULIN-DEPENDENT
     Route: 048
     Dates: start: 20020101
  8. ZOCOR [Concomitant]
     Indication: BLOOD CHOLESTEROL INCREASED
     Route: 048
  9. URSO [Concomitant]
     Route: 048
     Dates: start: 19940101

REACTIONS (1)
  - BILE DUCT STONE [None]
